FAERS Safety Report 17966242 (Version 5)
Quarter: 2020Q3

REPORT INFORMATION
  Report Type: Spontaneous
  Country: US (occurrence: US)
  Receive Date: 20200701
  Receipt Date: 20200731
  Transmission Date: 20201103
  Serious: Yes (Death, Life-Threatening, Hospitalization, Other)
  Sender: FDA-Public Use
  Company Number: US-UNITED THERAPEUTICS-UNT-2020-009594

PATIENT
  Age: 74 Year
  Sex: Female
  Weight: 68.48 kg

DRUGS (4)
  1. XARELTO [Concomitant]
     Active Substance: RIVAROXABAN
     Indication: PRODUCT USED FOR UNKNOWN INDICATION
     Dosage: UNK
     Route: 065
  2. REMODULIN [Suspect]
     Active Substance: TREPROSTINIL
     Indication: PULMONARY ARTERIAL HYPERTENSION
     Dosage: UNK, CONTINUING
     Route: 058
     Dates: start: 20180202
  3. REMODULIN [Suspect]
     Active Substance: TREPROSTINIL
     Dosage: 0.0455 ?G/KG, CONTINUING
     Route: 058
  4. OPSUMIT [Concomitant]
     Active Substance: MACITENTAN
     Indication: PRODUCT USED FOR UNKNOWN INDICATION
     Dosage: UNK
     Route: 065

REACTIONS (6)
  - Death [Fatal]
  - Pulmonary arterial hypertension [Recovered/Resolved]
  - Mitral valve disease [Unknown]
  - Atrial fibrillation [Unknown]
  - Cardiac arrest [Unknown]
  - Fluid overload [Unknown]

NARRATIVE: CASE EVENT DATE: 20200709
